FAERS Safety Report 7425745-0 (Version None)
Quarter: 2011Q2

REPORT INFORMATION
  Report Type: 
  Country: None (occurrence: None)
  Receive Date: 20110420
  Receipt Date: 20110413
  Transmission Date: 20111010
  Serious: Yes (Other)
  Sender: FDA-Public Use
  Company Number: RU-BRISTOL-MYERS SQUIBB COMPANY-15597511

PATIENT
  Age: 17 Year
  Sex: Female

DRUGS (4)
  1. METHOTREXATE [Suspect]
  2. FOLIC ACID [Suspect]
  3. METHYLPREDNISOLONE [Suspect]
  4. ABATACEPT [Suspect]
     Indication: RHEUMATOID ARTHRITIS
     Dosage: INJ
     Route: 042
     Dates: start: 20100401, end: 20110201

REACTIONS (2)
  - MITRAL VALVE PROLAPSE [None]
  - CARDIAC NEOPLASM UNSPECIFIED [None]
